FAERS Safety Report 10784815 (Version 1)
Quarter: 2015Q1

REPORT INFORMATION
  Report Type: Spontaneous
  Country: US (occurrence: US)
  Receive Date: 20150211
  Receipt Date: 20150211
  Transmission Date: 20150721
  Serious: No
  Sender: FDA-Public Use
  Company Number: US-GLAXOSMITHKLINE-A1088646A

PATIENT

DRUGS (4)
  1. LAMICTAL [Suspect]
     Active Substance: LAMOTRIGINE
     Indication: PRODUCT USED FOR UNKNOWN INDICATION
     Dosage: 100 MG TABLET TWICE DAILY, 200 MG TABLET DAILY (PATIENT UNCLEAR ON DOSING)
     Route: 048
  2. ESTRADIOL. [Concomitant]
     Active Substance: ESTRADIOL
  3. DEPAKOTE [Concomitant]
     Active Substance: DIVALPROEX SODIUM
  4. RISPERIDONE. [Concomitant]
     Active Substance: RISPERIDONE

REACTIONS (3)
  - Malaise [Recovered/Resolved]
  - Overdose [Recovered/Resolved]
  - Confusional state [Recovered/Resolved]
